FAERS Safety Report 6077451-5 (Version None)
Quarter: 2009Q1

REPORT INFORMATION
  Report Type: 
  Country: None (occurrence: None)
  Receive Date: 20090213
  Receipt Date: 20081105
  Transmission Date: 20090719
  Serious: No
  Sender: FDA-Public Use
  Company Number: A0755009A

PATIENT
  Sex: Female

DRUGS (1)
  1. TREXIMET [Suspect]
     Indication: MIGRAINE
     Dosage: 1TAB AS REQUIRED
     Route: 048
     Dates: start: 20081001

REACTIONS (1)
  - PALPITATIONS [None]
